FAERS Safety Report 15416688 (Version 2)
Quarter: 2018Q4

REPORT INFORMATION
  Report Type: Spontaneous
  Country: US (occurrence: US)
  Receive Date: 20180924
  Receipt Date: 20181008
  Transmission Date: 20190204
  Serious: No
  Sender: FDA-Public Use
  Company Number: US-ASTRAZENECA-2018SF11229

PATIENT
  Age: 57 Year
  Sex: Female
  Weight: 71.7 kg

DRUGS (3)
  1. IBRANCE [Concomitant]
     Active Substance: PALBOCICLIB
     Dates: start: 201610
  2. FASLODEX [Suspect]
     Active Substance: FULVESTRANT
     Dosage: DAY 1, DAY 15, AND DAY 29
     Route: 030
  3. FASLODEX [Suspect]
     Active Substance: FULVESTRANT
     Route: 030
     Dates: start: 201610

REACTIONS (1)
  - Vaginal odour [Not Recovered/Not Resolved]
